FAERS Safety Report 9009159 (Version 1)
Quarter: 2013Q1

REPORT INFORMATION
  Report Type: Report from Study
  Country: ES (occurrence: ES)
  Receive Date: 20130111
  Receipt Date: 20130111
  Transmission Date: 20140127
  Serious: Yes (Hospitalization)
  Sender: FDA-Public Use
  Company Number: ES-BAXTER-2013BAX000683

PATIENT
  Age: 80 Year
  Sex: Male
  Weight: 63 kg

DRUGS (4)
  1. GENOXAL [Suspect]
     Indication: CHRONIC LYMPHOCYTIC LEUKAEMIA
     Dosage: 280 (UNIT NOT REPORTED)
     Route: 048
     Dates: start: 20110912, end: 20110914
  2. RITUXIMAB [Suspect]
     Indication: CHRONIC LYMPHOCYTIC LEUKAEMIA
     Dosage: 830 (UNIT NOT REPORTED)
     Route: 042
     Dates: start: 20110808, end: 20110808
  3. RITUXIMAB [Suspect]
     Dosage: 830 (UNIT NOT REPORTED)
     Route: 042
     Dates: start: 20110912, end: 20110912
  4. FLUDARABINE [Suspect]
     Indication: CHRONIC LYMPHOCYTIC LEUKAEMIA
     Dosage: 90 (UNIT NOT REPORTED)
     Route: 048
     Dates: start: 20110912, end: 20110914

REACTIONS (5)
  - Oropharyngeal candidiasis [Recovered/Resolved]
  - Device related infection [Recovered/Resolved]
  - Gastroenteritis [Recovered/Resolved]
  - Febrile neutropenia [Recovered/Resolved]
  - Pyrexia [Recovered/Resolved]
